FAERS Safety Report 9382923 (Version 2)
Quarter: 2013Q4

REPORT INFORMATION
  Report Type: Spontaneous
  Country: GR (occurrence: GR)
  Receive Date: 20130703
  Receipt Date: 20131031
  Transmission Date: 20140711
  Serious: Yes (Other)
  Sender: FDA-Public Use
  Company Number: GR-B.I. PHARMACEUTICALS,INC./RIDGEFIELD-2013-BI-19284YA

PATIENT
  Age: 76 Year
  Sex: Male

DRUGS (1)
  1. TAMSULOSINA [Suspect]
     Indication: BENIGN PROSTATIC HYPERPLASIA
     Route: 048

REACTIONS (4)
  - Cataract operation complication [Recovered/Resolved with Sequelae]
  - Pupillary disorder [Unknown]
  - Photophobia [Unknown]
  - Presbyopia [Unknown]
